FAERS Safety Report 8559697-7 (Version None)
Quarter: 2012Q3

REPORT INFORMATION
  Report Type: 
  Country: None (occurrence: None)
  Receive Date: 20120802
  Receipt Date: 20120730
  Transmission Date: 20120928
  Serious: Yes (Death)
  Sender: FDA-Public Use
  Company Number: IT-ASTELLAS-2011EU005114

PATIENT
  Sex: Male
  Weight: 80 kg

DRUGS (15)
  1. DAPTOMYCIN [Concomitant]
     Indication: ENTEROCOCCAL INFECTION
     Dosage: UNK
     Route: 065
     Dates: start: 20110710, end: 20110731
  2. NOREPINEPHRINE BITARTRATE [Concomitant]
     Dosage: UNK
     Route: 065
     Dates: start: 20110701, end: 20110731
  3. DOMPERIDON [Concomitant]
     Indication: PROPHYLAXIS
     Dosage: UNK
     Route: 065
     Dates: start: 20110706, end: 20110731
  4. RIFAXIMIN [Concomitant]
     Indication: PROPHYLAXIS
     Dosage: UNK
     Route: 065
     Dates: start: 20110712, end: 20110731
  5. NEOSTIGMINE METHYLSULFATE [Concomitant]
     Indication: PROPHYLAXIS
     Dosage: UNK
     Route: 065
     Dates: start: 20110730, end: 20110731
  6. MICAFUNGIN INJECTION [Suspect]
     Indication: ANTIFUNGAL TREATMENT
     Dosage: 100 MG, UID/QD
     Route: 042
     Dates: start: 20110705
  7. ACETYLCYSTEINE [Concomitant]
     Indication: PROPHYLAXIS
     Dosage: UNK
     Route: 065
     Dates: start: 20110709, end: 20110731
  8. MEROPENEM [Concomitant]
     Indication: STAPHYLOCOCCAL INFECTION
     Dosage: UNK
     Route: 065
     Dates: start: 20110712, end: 20110731
  9. OMEPRAZOLE [Concomitant]
     Indication: PROPHYLAXIS
     Dosage: UNK
     Route: 065
     Dates: start: 20110702, end: 20110731
  10. SELECTIVE SEROTONIN REUPTAKE INHIBITORS [Concomitant]
     Indication: PROPHYLAXIS
     Dosage: UNK
     Route: 065
     Dates: start: 20110726, end: 20110731
  11. DOPAMINE HCL [Concomitant]
     Dosage: UNK
     Route: 065
     Dates: start: 20110729, end: 20110731
  12. PENTAGLOBIN [Concomitant]
     Indication: PROPHYLAXIS
     Dosage: UNK
     Route: 065
     Dates: start: 20110705
  13. TACROLIMUS [Suspect]
     Dosage: UNK UNK, UNKNOWN/D
     Route: 065
  14. METHYLPREDNISOLONE [Concomitant]
     Indication: PROPHYLAXIS
     Dosage: UNK
     Route: 065
     Dates: start: 20110702, end: 20110731
  15. ISOPRENALIN [Concomitant]
     Indication: ARRHYTHMIA
     Dosage: UNK
     Route: 065
     Dates: start: 20110729, end: 20110731

REACTIONS (5)
  - PULSELESS ELECTRICAL ACTIVITY [None]
  - STAPHYLOCOCCAL INFECTION [None]
  - HEPATIC FAILURE [None]
  - CARDIAC ARREST [None]
  - HEPATIC ISCHAEMIA [None]
